FAERS Safety Report 18511112 (Version 2)
Quarter: 2021Q4

REPORT INFORMATION
  Report Type: Spontaneous
  Country: US (occurrence: US)
  Receive Date: 20201117
  Receipt Date: 20211229
  Transmission Date: 20220304
  Serious: Yes (Other)
  Sender: FDA-Public Use
  Company Number: US-SAARTEMIS-SAC202011120405

PATIENT
  Age: 54 Year

DRUGS (1)
  1. ZANTAC [Suspect]
     Active Substance: RANITIDINE HYDROCHLORIDE
     Indication: Dyspepsia
     Dosage: UNK
     Dates: start: 199801, end: 201608

REACTIONS (2)
  - Pancreatic carcinoma [Unknown]
  - Gastric cancer [Unknown]

NARRATIVE: CASE EVENT DATE: 20160801
